FAERS Safety Report 4881734-1 (Version None)
Quarter: 2006Q1

REPORT INFORMATION
  Report Type: 
  Country: None (occurrence: None)
  Receive Date: 20060116
  Receipt Date: 20060105
  Transmission Date: 20060701
  Serious: Yes (Hospitalization)
  Sender: FDA-Public Use
  Company Number: FR-ROCHE-430773

PATIENT
  Age: 76 Year
  Sex: Female

DRUGS (13)
  1. ROCEPHIN [Suspect]
     Dosage: INJECTION ON THE 18, 20, 22 AND 25 OCT 2005.
     Route: 042
     Dates: start: 20051018, end: 20051025
  2. VANCOMYCIN [Concomitant]
     Dosage: ON 11 AND 22 OCT 2005.
     Route: 042
     Dates: start: 20051011, end: 20051022
  3. RENAGEL [Concomitant]
  4. KARDEGIC [Concomitant]
  5. LASILIX [Concomitant]
  6. MOLSIDOMINE [Concomitant]
  7. NEXIUM [Concomitant]
  8. ATARAX [Concomitant]
  9. CORDARONE [Concomitant]
  10. NOVOMIX [Concomitant]
  11. SECTRAL [Concomitant]
  12. NEORECORMON [Concomitant]
  13. VENOFER [Concomitant]

REACTIONS (8)
  - ACUTE GENERALISED EXANTHEMATOUS PUSTULOSIS [None]
  - DRUG RASH WITH EOSINOPHILIA AND SYSTEMIC SYMPTOMS [None]
  - EOSINOPHILIA [None]
  - GUTTATE PSORIASIS [None]
  - PARONYCHIA [None]
  - PRURITUS [None]
  - PYREXIA [None]
  - SKIN EXFOLIATION [None]
